FAERS Safety Report 15112190 (Version 3)
Quarter: 2019Q1

REPORT INFORMATION
  Report Type: Spontaneous
  Country: GB (occurrence: GB)
  Receive Date: 20180705
  Receipt Date: 20190116
  Transmission Date: 20190417
  Serious: Yes (Other)
  Sender: FDA-Public Use
  Company Number: GB-PFIZER INC-HQWYE257420SEP07

PATIENT
  Age: 21 Year
  Sex: Female

DRUGS (7)
  1. COLOMYCIN (COLISTIN) [Interacting]
     Active Substance: COLISTIN SULFATE
     Indication: CONDITION AGGRAVATED
  2. ANADIN IBUPROFEN [Interacting]
     Active Substance: IBUPROFEN
     Indication: PSEUDOMONAS INFECTION
  3. TOBRAMYCIN. [Interacting]
     Active Substance: TOBRAMYCIN
     Indication: CONDITION AGGRAVATED
     Dosage: 120 MG, 3X/DAY
     Route: 042
     Dates: start: 200311
  4. AZITHROMYCIN ANHYDROUS. [Interacting]
     Active Substance: AZITHROMYCIN ANHYDROUS
     Indication: ANTIINFLAMMATORY THERAPY
     Dosage: UNKNOWN
     Dates: start: 2003, end: 2003
  5. ANADIN IBUPROFEN [Suspect]
     Active Substance: IBUPROFEN
     Indication: ARTHROPATHY
     Dosage: UNKNOWN
     Dates: start: 2003, end: 2003
  6. TOBRAMYCIN. [Interacting]
     Active Substance: TOBRAMYCIN
     Indication: LUNG INFECTION PSEUDOMONAL
  7. COLOMYCIN (COLISTIN) [Interacting]
     Active Substance: COLISTIN SULFATE
     Indication: PSEUDOMONAS INFECTION
     Dosage: 2 DF, 3X/DAY
     Route: 042
     Dates: start: 200311, end: 2003

REACTIONS (6)
  - Hypophagia [Recovered/Resolved]
  - Vomiting [Recovered/Resolved]
  - Drug interaction [Recovered/Resolved]
  - Acute kidney injury [Recovered/Resolved]
  - Weight decreased [Recovered/Resolved]
  - Dyspepsia [Recovered/Resolved]

NARRATIVE: CASE EVENT DATE: 2003
